FAERS Safety Report 24581034 (Version 1)
Quarter: 2024Q4

REPORT INFORMATION
  Report Type: Spontaneous
  Country: CN (occurrence: CN)
  Receive Date: 20241105
  Receipt Date: 20241105
  Transmission Date: 20250114
  Serious: Yes (Hospitalization)
  Sender: ROCHE
  Company Number: CN-BoehringerIngelheim-2024-BI-060066

PATIENT
  Age: 61 Year
  Sex: Female
  Weight: 60.0 kg

DRUGS (2)
  1. ALTEPLASE [Suspect]
     Active Substance: ALTEPLASE
     Indication: Cerebral infarction
     Route: 042
     Dates: start: 20241012, end: 20241012
  2. PANTOPRAZOLE SODIUM I.V. [Concomitant]
     Active Substance: PANTOPRAZOLE SODIUM
     Indication: Cerebral infarction
     Route: 042
     Dates: start: 20241012, end: 20241012

REACTIONS (3)
  - Dyspnoea [Recovering/Resolving]
  - Blood pressure decreased [Recovering/Resolving]
  - Heart rate decreased [Recovering/Resolving]

NARRATIVE: CASE EVENT DATE: 20241012
